FAERS Safety Report 9551827 (Version 1)
Quarter: 2013Q3

REPORT INFORMATION
  Report Type: Spontaneous
  Country: US (occurrence: None)
  Receive Date: 20130724
  Receipt Date: 20130724
  Transmission Date: 20140515
  Serious: Yes (Other)
  Sender: FDA-Public Use
  Company Number: PHEH2012US024243

PATIENT
  Age: 70 Year
  Sex: Male

DRUGS (6)
  1. GLEEVEC (IMATINIB) UNKNOWN [Suspect]
     Indication: NEOPLASM MALIGNANT
     Route: 048
  2. PRAVASTATIN [Concomitant]
  3. LISINOPRIL HCTZ (HYDROCHLOROTHIAZIDE, LISINOPRIL) [Concomitant]
  4. VERAPAMIL [Concomitant]
  5. IMODIUM AD (LOPERAMIDE HYDROCHLORIDE) [Concomitant]
  6. PRILOSEC [Concomitant]

REACTIONS (1)
  - Malignant neoplasm progression [None]
